FAERS Safety Report 8512129-7 (Version None)
Quarter: 2012Q3

REPORT INFORMATION
  Report Type: 
  Country: None (occurrence: None)
  Receive Date: 20120716
  Receipt Date: 20120713
  Transmission Date: 20120928
  Serious: Yes (Hospitalization)
  Sender: FDA-Public Use
  Company Number: US-FRI-1000024119

PATIENT
  Age: 23 Year
  Sex: Female

DRUGS (3)
  1. VIIBRYD [Suspect]
     Indication: DEPRESSION
     Dosage: 10 MG
     Dates: start: 20110729, end: 20110804
  2. VIIBRYD [Suspect]
     Dosage: 20 MG
     Dates: start: 20110805, end: 20110811
  3. VIIBRYD [Suspect]
     Dosage: 40 MG
     Dates: start: 20110812, end: 20110908

REACTIONS (1)
  - SUICIDE ATTEMPT [None]
